FAERS Safety Report 6335834-X (Version None)
Quarter: 2009Q3

REPORT INFORMATION
  Report Type: 
  Country: None (occurrence: None)
  Receive Date: 20090828
  Receipt Date: 20090812
  Transmission Date: 20100115
  Serious: Yes (Death, Hospitalization)
  Sender: FDA-Public Use
  Company Number: 2009080048

PATIENT
  Age: 82 Year
  Sex: Male

DRUGS (6)
  1. TORSEMIDE [Suspect]
     Indication: HYPERTENSIVE HEART DISEASE
     Dosage: 1 DOSAGE FORMS (1 DOSAGE FORMS,1 IN 1 D),ORAL
     Route: 048
  2. RITUXIMAB (RITUXIMAB) [Suspect]
     Indication: CRYOGLOBULINAEMIA
     Dosage: 2 DOSAGE FORMS (1 DOSAGE FORMS,2 IN 1 TOTAL),INTRAVENOUS (NOT OTHERWISE SPECIFIED)
     Route: 042
     Dates: start: 20081022, end: 20081216
  3. MARCUMAR [Concomitant]
  4. NEXIUM [Concomitant]
  5. PREDNISONE TAB [Concomitant]
  6. ZOLPIDEM [Concomitant]

REACTIONS (4)
  - DEHYDRATION [None]
  - DIALYSIS [None]
  - INFECTION [None]
  - RENAL FAILURE ACUTE [None]
